APPROVED DRUG PRODUCT: METFORMIN HYDROCHLORIDE
Active Ingredient: METFORMIN HYDROCHLORIDE
Strength: 850MG
Dosage Form/Route: TABLET;ORAL
Application: A076328 | Product #002
Applicant: TEVA PHARMACEUTICALS USA INC
Approved: Dec 16, 2002 | RLD: No | RS: No | Type: DISCN